FAERS Safety Report 11870729 (Version 1)
Quarter: 2015Q4

REPORT INFORMATION
  Report Type: Spontaneous
  Country: US (occurrence: None)
  Receive Date: 20151223
  Receipt Date: 20151223
  Transmission Date: 20160305
  Serious: Yes (Hospitalization)
  Sender: FDA-Public Use
  Company Number: None

PATIENT
  Age: 51 Year
  Sex: Male
  Weight: 91.63 kg

DRUGS (8)
  1. GLIMIPERIDE [Concomitant]
  2. AVAPRO [Concomitant]
     Active Substance: IRBESARTAN
  3. MULTI VITAMIN [Concomitant]
     Active Substance: VITAMINS
  4. INVOKANA [Suspect]
     Active Substance: CANAGLIFLOZIN
     Indication: TYPE 2 DIABETES MELLITUS
     Route: 048
     Dates: start: 20130727, end: 20130803
  5. JANUMET [Concomitant]
     Active Substance: METFORMIN HYDROCHLORIDE\SITAGLIPTIN PHOSPHATE
  6. ZEBETA [Concomitant]
     Active Substance: BISOPROLOL FUMARATE
  7. LISINOPRIL. [Concomitant]
     Active Substance: LISINOPRIL
  8. LIPITOR [Concomitant]
     Active Substance: ATORVASTATIN CALCIUM

REACTIONS (5)
  - Diabetic ketoacidosis [None]
  - Influenza like illness [None]
  - Dyspnoea [None]
  - Treatment noncompliance [None]
  - Asthenia [None]

NARRATIVE: CASE EVENT DATE: 20130804
